FAERS Safety Report 4556133-2 (Version None)
Quarter: 2005Q1

REPORT INFORMATION
  Report Type: 
  Country: None (occurrence: None)
  Receive Date: 20050118
  Receipt Date: 20050103
  Transmission Date: 20050727
  Serious: Yes (Life-Threatening, Hospitalization, Other)
  Sender: FDA-Public Use
  Company Number: A-US2004-08060

PATIENT
  Age: 13 Month
  Sex: Male
  Weight: 6.6 kg

DRUGS (14)
  1. TRACLEER [Suspect]
     Indication: PULMONARY HYPERTENSION
     Dosage: 15.625 MG, QD, ORAL
     Route: 048
     Dates: start: 20040518, end: 20041110
  2. DIGOXIN [Concomitant]
  3. LASIX [Concomitant]
  4. SPIRONOLACTONE [Concomitant]
  5. LANSOPRAZOLE [Concomitant]
  6. DOCUSATE (DOCUSATE) [Concomitant]
  7. ASPIRIN [Concomitant]
  8. SILDENAFIL (SILDENAFIL) [Concomitant]
  9. XOPENEX [Concomitant]
  10. PULMICORT [Concomitant]
  11. OXYGEN (OXYGEN) [Concomitant]
  12. ALDACTONE [Concomitant]
  13. FLOVENT [Concomitant]
  14. ALBUTEROL [Concomitant]

REACTIONS (12)
  - ABNORMAL FAECES [None]
  - COAGULOPATHY [None]
  - HEPATIC FAILURE [None]
  - HEPATOMEGALY [None]
  - ILEUS PARALYTIC [None]
  - IRRITABILITY [None]
  - PROTHROMBIN TIME PROLONGED [None]
  - PYREXIA [None]
  - RESPIRATORY FAILURE [None]
  - SPLENOMEGALY [None]
  - WHEEZING [None]
  - WHITE BLOOD CELL COUNT INCREASED [None]
